FAERS Safety Report 17546152 (Version 3)
Quarter: 2020Q1

REPORT INFORMATION
  Report Type: Spontaneous
  Country: US (occurrence: US)
  Receive Date: 20200316
  Receipt Date: 20200331
  Transmission Date: 20200409
  Serious: Yes (Other)
  Sender: FDA-Public Use
  Company Number: US-AMGEN-USASP2020040851

PATIENT
  Age: 70 Year
  Sex: Female
  Weight: 64.4 kg

DRUGS (1)
  1. PROLIA [Suspect]
     Active Substance: DENOSUMAB
     Indication: OSTEOPOROSIS POSTMENOPAUSAL
     Dosage: 60 MILLIGRAM, Q6MO
     Route: 058
     Dates: start: 20190530

REACTIONS (5)
  - Ear infection fungal [Unknown]
  - Rash [Not Recovered/Not Resolved]
  - Herpes zoster [Unknown]
  - Stomatitis [Unknown]
  - Sinusitis [Unknown]

NARRATIVE: CASE EVENT DATE: 2019
